FAERS Safety Report 5135516-6 (Version None)
Quarter: 2006Q4

REPORT INFORMATION
  Report Type: 
  Country: None (occurrence: None)
  Receive Date: 20061024
  Receipt Date: 20061024
  Transmission Date: 20070319
  Serious: Yes (Hospitalization)
  Sender: FDA-Public Use
  Company Number: None

PATIENT
  Age: 75 Year
  Sex: Male
  Weight: 102.5129 kg

DRUGS (12)
  1. ATENOLOL [Suspect]
     Indication: CARDIAC FAILURE CONGESTIVE
     Route: 048
     Dates: start: 20021201, end: 20060814
  2. ATENOLOL [Suspect]
     Indication: CORONARY ARTERY DISEASE
     Route: 048
     Dates: start: 20021201, end: 20060814
  3. LISINOPRIL [Suspect]
     Route: 048
     Dates: start: 20050401, end: 20060814
  4. FUROSEMIDE [Suspect]
     Route: 048
     Dates: start: 20021201, end: 20060814
  5. ATORVASTATIN CALCIUM [Concomitant]
  6. BENZONATATE [Concomitant]
  7. EZETIMIBE [Concomitant]
  8. NPH INSULIN [Concomitant]
  9. LANCET, TECHLITE [Concomitant]
  10. POTASSIUM CL [Concomitant]
  11. PROBENECID [Concomitant]
  12. COUMADIN [Concomitant]

REACTIONS (3)
  - ASTHENIA [None]
  - DIARRHOEA [None]
  - HYPOTENSION [None]
